FAERS Safety Report 14823169 (Version 10)
Quarter: 2020Q3

REPORT INFORMATION
  Report Type: Report from Study
  Country: US (occurrence: US)
  Receive Date: 20180427
  Receipt Date: 20200702
  Transmission Date: 20201102
  Serious: Yes (Death, Hospitalization, Disabling, Congenital Anomaly, Other)
  Sender: FDA-Public Use
  Company Number: US-ACTELION-A-NJ2018-166518

PATIENT
  Age: 14 Year
  Sex: Male

DRUGS (15)
  1. UPTRAVI [Suspect]
     Active Substance: SELEXIPAG
     Dosage: 1000 MCG, BID
     Route: 048
     Dates: start: 20180501
  2. LASIX [Concomitant]
     Active Substance: FUROSEMIDE
     Dosage: 20 MG, BID
  3. FUROSEMIDE. [Concomitant]
     Active Substance: FUROSEMIDE
     Dosage: 20 MG, BID
     Dates: start: 20180503
  4. POTASSIUM CHLORIDE. [Concomitant]
     Active Substance: POTASSIUM CHLORIDE
     Dosage: 20 MEQ, BID
     Dates: start: 20180503
  5. WARFARIN [Concomitant]
     Active Substance: WARFARIN
  6. IBUPROFEN. [Concomitant]
     Active Substance: IBUPROFEN
  7. UPTRAVI [Suspect]
     Active Substance: SELEXIPAG
     Indication: PULMONARY ARTERIAL HYPERTENSION
     Dosage: 600 MG, BID
     Route: 048
     Dates: start: 20180320
  8. SILDENAFIL. [Concomitant]
     Active Substance: SILDENAFIL
     Dosage: 20 MG, TID
     Dates: start: 20170928
  9. UPTRAVI [Suspect]
     Active Substance: SELEXIPAG
     Dosage: 1600 MCG, BID
     Route: 048
     Dates: end: 20180723
  10. ENOXAPARIN [Concomitant]
     Active Substance: ENOXAPARIN
  11. SPIRONOLACTONE W/HYDROCHLOROTHIAZIDE [Concomitant]
     Active Substance: HYDROCHLOROTHIAZIDE\SPIRONOLACTONE
     Dosage: 25?25 MG BID
     Dates: start: 20180503
  12. OPSUMIT [Suspect]
     Active Substance: MACITENTAN
     Indication: PULMONARY ARTERIAL HYPERTENSION
     Dosage: 10 MG, QD
     Route: 048
     Dates: start: 201711, end: 20200521
  13. LASIX [Concomitant]
     Active Substance: FUROSEMIDE
     Dosage: 40 MG, BID
     Route: 042
     Dates: start: 20200329
  14. ASPIRIN. [Concomitant]
     Active Substance: ASPIRIN
     Dosage: 81 MG, QD
     Dates: start: 20071128
  15. SPIRONOLACTONE. [Concomitant]
     Active Substance: SPIRONOLACTONE

REACTIONS (40)
  - Diarrhoea [Recovered/Resolved]
  - Abdominal pain upper [Recovered/Resolved]
  - Hepatic cirrhosis [Unknown]
  - Pyrexia [Unknown]
  - Respiratory distress [Unknown]
  - Hypoxia [Unknown]
  - Biopsy liver [Unknown]
  - Cardiac failure [Unknown]
  - Hepatic fibrosis [Unknown]
  - Ventricular fibrillation [Fatal]
  - Tachycardia [Unknown]
  - Feeling hot [Unknown]
  - Syncope [Recovered/Resolved]
  - Blood sodium decreased [Unknown]
  - Cardiac arrest [Fatal]
  - Upper respiratory tract infection [Unknown]
  - Protein-losing gastroenteropathy [Unknown]
  - Vomiting [Recovered/Resolved]
  - Pruritus [Unknown]
  - Oedema peripheral [Unknown]
  - Oedema [Unknown]
  - Drain placement [Unknown]
  - Muscle spasms [Recovered/Resolved]
  - Haematochezia [Recovered/Resolved]
  - Therapy non-responder [Unknown]
  - Portal hypertension [Unknown]
  - Pneumonia [Not Recovered/Not Resolved]
  - Hypokalaemia [Unknown]
  - Malnutrition [Unknown]
  - Liver transplant [Unknown]
  - Hypoalbuminaemia [Unknown]
  - Blood potassium decreased [Unknown]
  - Nausea [Recovered/Resolved]
  - Erythema [Unknown]
  - Ascites [Recovering/Resolving]
  - Condition aggravated [Recovering/Resolving]
  - Thoracic duct ligation [Unknown]
  - Heart transplant [Unknown]
  - Dizziness postural [Recovered/Resolved]
  - Abdominal discomfort [Unknown]

NARRATIVE: CASE EVENT DATE: 20180118
